FAERS Safety Report 7091705-5 (Version None)
Quarter: 2010Q4

REPORT INFORMATION
  Report Type: 
  Country: None (occurrence: None)
  Receive Date: 20101109
  Receipt Date: 20090622
  Transmission Date: 20110411
  Serious: No
  Sender: FDA-Public Use
  Company Number: US-KINGPHARMUSA00001-K200900738

PATIENT
  Sex: Female
  Weight: 76.644 kg

DRUGS (8)
  1. FLECTOR [Suspect]
     Indication: PAIN IN EXTREMITY
     Dosage: 1 PATCH, BID
     Route: 061
     Dates: start: 20090620
  2. FUROSEMIDE [Concomitant]
     Indication: OEDEMA PERIPHERAL
     Dosage: 120 MG, QD
     Route: 048
  3. ASPIRIN [Concomitant]
     Dosage: UNK
     Route: 048
  4. VICODIN [Concomitant]
     Dosage: UNK
  5. GLUCOVANCE [Concomitant]
     Indication: DIABETES MELLITUS
     Dosage: UNK
     Route: 048
  6. ISOSORBIDE DINITRATE [Concomitant]
     Indication: CARDIAC DISORDER
     Dosage: UNK
     Route: 048
  7. PLAVIX [Concomitant]
     Indication: CARDIAC DISORDER
     Dosage: 175 MG, UNK
     Route: 048
  8. DIVALPROEX SODIUM [Concomitant]
     Indication: MENTAL DISORDER
     Dosage: UNK
     Route: 048

REACTIONS (2)
  - ANXIETY [None]
  - NAUSEA [None]
